FAERS Safety Report 9802822 (Version 1)
Quarter: 2014Q1

REPORT INFORMATION
  Report Type: Spontaneous
  Country: US (occurrence: US)
  Receive Date: 20140108
  Receipt Date: 20140108
  Transmission Date: 20141002
  Serious: Yes (Other)
  Sender: FDA-Public Use
  Company Number: US-GE HEALTHCARE MEDICAL DIAGNOSTICS-OSCN-PR-1312S-0139

PATIENT
  Age: 67 Year
  Sex: Female

DRUGS (1)
  1. GADOLINIUM (UNSPECIFIED) [Suspect]
     Indication: HAEMOCHROMATOSIS
     Dates: start: 20021031, end: 20021031

REACTIONS (1)
  - Nephrogenic systemic fibrosis [Recovering/Resolving]
